FAERS Safety Report 9209205 (Version 2)
Quarter: 2013Q2

REPORT INFORMATION
  Report Type: Spontaneous
  Country: NL (occurrence: NL)
  Receive Date: 20130404
  Receipt Date: 20130419
  Transmission Date: 20140414
  Serious: Yes (Other)
  Sender: FDA-Public Use
  Company Number: PHHY2013NL032348

PATIENT
  Sex: Male

DRUGS (9)
  1. ZOMETA [Suspect]
     Indication: METASTASES TO BONE
     Dosage: 4 MG, PER 100 ML ONCE PER 28 DAYS
     Route: 042
     Dates: start: 2012
  2. ZOMETA [Suspect]
     Dosage: 4 MG, PER 100 ML ONCE PER 28 DAYS
     Route: 042
     Dates: start: 20121112
  3. ZOMETA [Suspect]
     Dosage: 4 MG, PER 100 ML ONCE PER 28 DAYS
     Route: 042
     Dates: start: 20130204
  4. ZOMETA [Suspect]
     Dosage: 4 MG, PER 100 ML ONCE PER 28 DAYS
     Route: 042
     Dates: start: 20130305
  5. ZOMETA [Suspect]
     Dosage: 4 MG, PER 100 ML ONCE PER 28 DAYS
     Route: 042
     Dates: start: 20130401
  6. MORPHINE [Concomitant]
     Indication: PAIN
     Dosage: UNK
     Route: 048
  7. PREDNISONE [Concomitant]
     Dosage: 5 MG, TWO DAILY DOSE
  8. ARCOXIA [Concomitant]
     Dosage: UNK UKN, UNK
  9. PARACETAMOL [Concomitant]
     Indication: PAIN
     Dosage: UNK

REACTIONS (5)
  - Terminal state [Not Recovered/Not Resolved]
  - Hypophagia [Not Recovered/Not Resolved]
  - Condition aggravated [Not Recovered/Not Resolved]
  - Pain [Not Recovered/Not Resolved]
  - Fatigue [Not Recovered/Not Resolved]
